FAERS Safety Report 6686067-9 (Version None)
Quarter: 2010Q2

REPORT INFORMATION
  Report Type: 
  Country: None (occurrence: None)
  Receive Date: 20100419
  Receipt Date: 20100408
  Transmission Date: 20101027
  Serious: Yes (Hospitalization)
  Sender: FDA-Public Use
  Company Number: US-JNJFOC-20100111359

PATIENT
  Sex: Female
  Weight: 71.22 kg

DRUGS (6)
  1. EXTRA STRENGTH TYLENOL [Suspect]
     Indication: PYREXIA
     Route: 048
  2. EXTRA STRENGTH TYLENOL [Suspect]
     Indication: PAIN
     Route: 048
  3. EXTRA STRENGTH TYLENOL [Suspect]
     Indication: PHARYNGITIS
     Route: 048
  4. EXTRA STRENGTH TYLENOL PM [Suspect]
     Indication: PYREXIA
     Route: 048
  5. EXTRA STRENGTH TYLENOL PM [Suspect]
     Indication: PAIN
     Route: 048
  6. EXTRA STRENGTH TYLENOL PM [Suspect]
     Indication: PHARYNGITIS
     Route: 048

REACTIONS (5)
  - ABDOMINAL PAIN UPPER [None]
  - DIARRHOEA [None]
  - INTENTIONAL DRUG MISUSE [None]
  - PRODUCT QUALITY ISSUE [None]
  - VOMITING [None]
